FAERS Safety Report 23220068 (Version 1)
Quarter: 2023Q4

REPORT INFORMATION
  Report Type: Other
  Country: US (occurrence: None)
  Receive Date: 20231122
  Receipt Date: 20231122
  Transmission Date: 20240110
  Serious: Yes (Hospitalization)
  Sender: FDA-Public Use
  Company Number: US-Encube-000524

PATIENT
  Age: 4 Decade
  Sex: Female

DRUGS (2)
  1. TRIAMCINOLONE ACETONIDE [Suspect]
     Active Substance: TRIAMCINOLONE ACETONIDE
     Indication: Product used for unknown indication
  2. MORPHINE [Concomitant]
     Active Substance: MORPHINE
     Indication: Pain

REACTIONS (7)
  - Abdominal pain [Unknown]
  - Nausea [Unknown]
  - Vomiting [Unknown]
  - Failure to thrive [Unknown]
  - Cortisol decreased [Unknown]
  - Blood corticotrophin decreased [Unknown]
  - Dehydroepiandrosterone decreased [Unknown]
